FAERS Safety Report 5860672-1 (Version None)
Quarter: 2008Q3

REPORT INFORMATION
  Report Type: 
  Country: None (occurrence: None)
  Receive Date: 20080827
  Receipt Date: 20071008
  Transmission Date: 20090109
  Serious: No
  Sender: FDA-Public Use
  Company Number: US-ABBOTT-07P-163-0420783-00

PATIENT
  Sex: Male

DRUGS (3)
  1. COATED PDS [Suspect]
     Indication: DRUG USE FOR UNKNOWN INDICATION
     Dosage: COATED
     Dates: start: 20070905
  2. COATED PDS [Suspect]
     Dosage: WHITE
     Dates: start: 20060101, end: 20070904
  3. COATED PDS [Suspect]

REACTIONS (3)
  - FLUSHING [None]
  - GENERALISED ERYTHEMA [None]
  - PRURITUS [None]
